FAERS Safety Report 4765846-9 (Version None)
Quarter: 2005Q3

REPORT INFORMATION
  Report Type: 
  Country: None (occurrence: None)
  Receive Date: 20050906
  Receipt Date: 20050819
  Transmission Date: 20060218
  Serious: Yes (Other)
  Sender: FDA-Public Use
  Company Number: HQWYE682903AUG05

PATIENT
  Age: 83 Year
  Sex: Male

DRUGS (6)
  1. LEVAQUIN [Suspect]
     Indication: PNEUMONIA
     Dosage: 500 MG DAILY, INTRAVENOUS
     Route: 042
     Dates: start: 20041124
  2. ENALAPRILAT (ENALAPRILAT) [Concomitant]
  3. RANITIDINE [Concomitant]
  4. FUROSEMIDE [Concomitant]
  5. HEPARIN [Concomitant]
  6. ASPIRIN [Concomitant]

REACTIONS (7)
  - BLOOD ALBUMIN DECREASED [None]
  - BLOOD CREATININE DECREASED [None]
  - ELECTROCARDIOGRAM QT CORRECTED INTERVAL PROLONGED [None]
  - ELECTROCARDIOGRAM QT PROLONGED [None]
  - HAEMATOCRIT DECREASED [None]
  - PCO2 INCREASED [None]
  - RED BLOOD CELL COUNT DECREASED [None]
